FAERS Safety Report 13095648 (Version 2)
Quarter: 2017Q1

REPORT INFORMATION
  Report Type: Spontaneous
  Country: US (occurrence: US)
  Receive Date: 20170108
  Receipt Date: 20170117
  Transmission Date: 20170428
  Serious: Yes (Other)
  Sender: FDA-Public Use
  Company Number: US-BEH-2017076861

PATIENT
  Age: 16 Year
  Sex: Female

DRUGS (2)
  1. STIMATE [Suspect]
     Active Substance: DESMOPRESSIN ACETATE
     Indication: VON WILLEBRAND^S DISEASE
     Dosage: 1 SPRAY INTO NOSTRIL
     Route: 045
     Dates: start: 20150525
  2. STIMATE [Suspect]
     Active Substance: DESMOPRESSIN ACETATE
     Dosage: 1 SPRAY DAILY FOR 3 DAYS
     Route: 045

REACTIONS (2)
  - Nausea [Recovered/Resolved]
  - Flushing [Recovered/Resolved]

NARRATIVE: CASE EVENT DATE: 20150525
